FAERS Safety Report 6301386-3 (Version None)
Quarter: 2009Q3

REPORT INFORMATION
  Report Type: 
  Country: None (occurrence: None)
  Receive Date: 20090805
  Receipt Date: 20090805
  Transmission Date: 20100115
  Serious: Yes (Hospitalization)
  Sender: FDA-Public Use
  Company Number: None

PATIENT
  Sex: Male
  Weight: 79.6 kg

DRUGS (8)
  1. DASATINIB 50 MG BRISTOL MYERS SQUIBB [Suspect]
     Indication: CHORDOMA
     Dosage: 50 MG BID PO
     Route: 048
     Dates: start: 20090608, end: 20090803
  2. DASATINIB 20 MG BRISTOL MYERS SQUIBB [Suspect]
     Indication: CHORDOMA
     Dosage: 20 MG BID PO
     Route: 048
     Dates: start: 20090608, end: 20090803
  3. NEURONTIN [Concomitant]
  4. PEPCID [Concomitant]
  5. COMPAZINE [Concomitant]
  6. DILAUDID [Concomitant]
  7. SENOKOT [Concomitant]
  8. COLACE [Concomitant]

REACTIONS (2)
  - DECREASED APPETITE [None]
  - GASTROINTESTINAL HAEMORRHAGE [None]
